FAERS Safety Report 5076113-0 (Version None)
Quarter: 2006Q3

REPORT INFORMATION
  Report Type: 
  Country: None (occurrence: None)
  Receive Date: 20060804
  Receipt Date: 20060726
  Transmission Date: 20061208
  Serious: Yes (Hospitalization)
  Sender: FDA-Public Use
  Company Number: 14464

PATIENT
  Age: 78 Year
  Sex: Female
  Weight: 87 kg

DRUGS (18)
  1. DACARBAZINE [Suspect]
     Indication: MALIGNANT MELANOMA STAGE IV
     Dosage: 850 MG/M2 IV
     Route: 042
     Dates: start: 20060629
  2. BOSENTAN (OR PLACEBO, CODE NOT BROKEN) [Suspect]
     Indication: MALIGNANT MELANOMA STAGE IV
     Dosage: 500 MG BID PO
     Route: 048
     Dates: start: 20060629
  3. PREDNISOLONE [Concomitant]
  4. ALPRAZOLAM [Concomitant]
  5. AMITRIPTYLINE HCL [Concomitant]
  6. RANITIDINE [Concomitant]
  7. TEMAZEPAM [Concomitant]
  8. ENDONE [Concomitant]
  9. PRAVACHOL [Concomitant]
  10. SPIRIVA [Concomitant]
  11. OMEPRAZOLE [Concomitant]
  12. ASPIRIN [Concomitant]
  13. COLOXYL WITH SENNA [Concomitant]
  14. ZOLPIDEM TARTRATE [Concomitant]
  15. DEXAMETHASONE [Concomitant]
  16. DOLASETRON [Concomitant]
  17. APREPITANT [Concomitant]
  18. MAXOLON [Concomitant]

REACTIONS (12)
  - ABDOMINAL PAIN LOWER [None]
  - ANXIETY [None]
  - BACILLUS INFECTION [None]
  - BACK PAIN [None]
  - BACTERIAL INFECTION [None]
  - COUGH [None]
  - DYSPNOEA [None]
  - LOWER RESPIRATORY TRACT INFECTION [None]
  - METASTASES TO BONE [None]
  - METASTASES TO LUNG [None]
  - SPUTUM CULTURE POSITIVE [None]
  - URINARY TRACT INFECTION [None]
